FAERS Safety Report 5176588-2 (Version None)
Quarter: 2006Q4

REPORT INFORMATION
  Report Type: 
  Country: None (occurrence: None)
  Receive Date: 20061207
  Receipt Date: 20061127
  Transmission Date: 20070319
  Serious: Yes (Other)
  Sender: FDA-Public Use
  Company Number: 2006106659

PATIENT
  Age: 68 Year
  Sex: Female

DRUGS (5)
  1. LIPITOR [Suspect]
     Indication: BLOOD CHOLESTEROL INCREASED
     Dosage: 5 MG (1 D); ORAL
     Route: 048
     Dates: start: 20060513
  2. NORVASC [Concomitant]
  3. ANGIOTENSIN II ANTAGONISTS (ANGIOTENSINII ANTAGONISTS) [Concomitant]
  4. ATELEC (CLINIDIPINE) [Concomitant]
  5. PRAVASTATIN [Concomitant]

REACTIONS (3)
  - BLOOD CREATINE INCREASED [None]
  - HIGH DENSITY LIPOPROTEIN INCREASED [None]
  - PROTEIN URINE PRESENT [None]
